FAERS Safety Report 5010593-1 (Version None)
Quarter: 2006Q2

REPORT INFORMATION
  Report Type: 
  Country: None (occurrence: None)
  Receive Date: 20060524
  Receipt Date: 20060524
  Transmission Date: 20061013
  Serious: No
  Sender: FDA-Public Use
  Company Number: None

PATIENT
  Age: 73 Year
  Sex: Male
  Weight: 81 kg

DRUGS (1)
  1. LISINOPRIL [Suspect]
     Dosage: MG  QD  PO
     Route: 048
     Dates: start: 20060125, end: 20060310

REACTIONS (1)
  - ANGIONEUROTIC OEDEMA [None]
